FAERS Safety Report 6222477-1 (Version None)
Quarter: 2009Q2

REPORT INFORMATION
  Report Type: 
  Country: None (occurrence: None)
  Receive Date: 20090608
  Receipt Date: 20090601
  Transmission Date: 20091009
  Serious: Yes (Life-Threatening)
  Sender: FDA-Public Use
  Company Number: IT-GENENTECH-284300

PATIENT
  Sex: Male

DRUGS (4)
  1. AVASTIN [Suspect]
     Indication: COLON CANCER
     Dosage: 350 MG, UNK
     Route: 042
     Dates: start: 20081031, end: 20081031
  2. AVASTIN [Suspect]
     Route: 042
  3. XELODA [Suspect]
     Indication: COLON CANCER
     Dosage: 2500 MG, UNK
     Route: 048
     Dates: start: 20081010, end: 20081031
  4. CAMPTOSAR [Suspect]
     Indication: COLON CANCER
     Dosage: 340 MG, UNK
     Route: 042
     Dates: start: 20081010, end: 20081031

REACTIONS (1)
  - JAUNDICE CHOLESTATIC [None]
